FAERS Safety Report 5450960-5 (Version None)
Quarter: 2007Q3

REPORT INFORMATION
  Report Type: 
  Country: None (occurrence: None)
  Receive Date: 20070911
  Receipt Date: 20070828
  Transmission Date: 20080115
  Serious: Yes (Hospitalization)
  Sender: FDA-Public Use
  Company Number: S07-FRA-03729-01

PATIENT
  Age: 78 Year
  Sex: Female

DRUGS (6)
  1. ESCITALOPRAM [Suspect]
     Dosage: 10 MG QD PO
     Route: 048
     Dates: start: 20050101
  2. PERINDOPRIL ERBUMINE [Suspect]
     Dosage: 4 MG QD PO
     Route: 048
     Dates: start: 20040101
  3. FRAXIPARINE (HEPARIN-FRACTION, CALCIUM SALT) [Concomitant]
  4. DESLORATADINE [Concomitant]
  5. LEVOTHYROXINE SODIUM [Concomitant]
  6. FOLIC ACID [Concomitant]

REACTIONS (7)
  - BLOOD OSMOLARITY INCREASED [None]
  - BLOOD UREA INCREASED [None]
  - DEHYDRATION [None]
  - ESCHAR [None]
  - FUNGAL INFECTION [None]
  - GENERAL PHYSICAL HEALTH DETERIORATION [None]
  - SKIN DISORDER [None]
